FAERS Safety Report 5679855-9 (Version None)
Quarter: 2008Q1

REPORT INFORMATION
  Report Type: 
  Country: None (occurrence: None)
  Receive Date: 20080324
  Receipt Date: 20080311
  Transmission Date: 20080703
  Serious: Yes (Other)
  Sender: FDA-Public Use
  Company Number: 2008TJ0049

PATIENT
  Age: 46 Year
  Sex: Male

DRUGS (7)
  1. TWINJECT (EPINEPHRINE) (PHILLIPS) [Suspect]
     Indication: ANAPHYLACTIC REACTION
     Dosage: 0.3 MG, SUBCUTANEOUS/INTRAMUSCULAR
     Route: 058
  2. ZADITEN [Concomitant]
  3. NEXIUM [Concomitant]
  4. CETIRIZINE HCL [Concomitant]
  5. NASONEX (MOMETASONE) [Concomitant]
  6. INHALER [Concomitant]
  7. PREDNISONE [Concomitant]

REACTIONS (2)
  - DEVICE FAILURE [None]
  - PHARMACEUTICAL PRODUCT COMPLAINT [None]
